FAERS Safety Report 8280094-6 (Version None)
Quarter: 2012Q2

REPORT INFORMATION
  Report Type: 
  Country: None (occurrence: None)
  Receive Date: 20120412
  Receipt Date: 20110407
  Transmission Date: 20120825
  Serious: No
  Sender: FDA-Public Use
  Company Number: US-ASTRAZENECA-2010SE56824

PATIENT
  Sex: Female

DRUGS (5)
  1. PRILOSEC [Suspect]
     Route: 048
  2. PREVACID [Suspect]
     Route: 065
  3. RANITIDINE HCL [Suspect]
     Route: 065
  4. ZANTAC [Suspect]
     Route: 065
  5. NEXIUM [Suspect]
     Route: 048

REACTIONS (7)
  - COLITIS [None]
  - DIVERTICULITIS [None]
  - NAUSEA [None]
  - DYSPEPSIA [None]
  - DRUG DOSE OMISSION [None]
  - ABDOMINAL PAIN UPPER [None]
  - VOMITING [None]
